FAERS Safety Report 13546160 (Version 3)
Quarter: 2018Q1

REPORT INFORMATION
  Report Type: Spontaneous
  Country: US (occurrence: US)
  Receive Date: 20170515
  Receipt Date: 20180305
  Transmission Date: 20180508
  Serious: No
  Sender: FDA-Public Use
  Company Number: US-ELITE LABORATORIES INC.-2017ELT00007

PATIENT
  Age: 31 Year
  Sex: Female

DRUGS (9)
  1. PROBIOTICS [Concomitant]
     Active Substance: PROBIOTICS NOS
  2. PHENTERMINE HYDROCHLORIDE. [Suspect]
     Active Substance: PHENTERMINE HYDROCHLORIDE
     Dosage: 18.75 MG, ONCE
     Dates: start: 20170502, end: 20170502
  3. PHENTERMINE HYDROCHLORIDE. [Suspect]
     Active Substance: PHENTERMINE HYDROCHLORIDE
     Indication: WEIGHT CONTROL
     Dosage: 37.5 MG, 1X/DAY
     Route: 048
     Dates: start: 20170430, end: 20170501
  4. AMLODIPINE [Concomitant]
     Active Substance: AMLODIPINE BESYLATE
  5. MULTIVITAMIN [Concomitant]
     Active Substance: VITAMINS
  6. HYDRALAZINE [Concomitant]
     Active Substance: HYDRALAZINE HYDROCHLORIDE
  7. BUSPAR [Concomitant]
     Active Substance: BUSPIRONE HYDROCHLORIDE
     Indication: ANXIETY
  8. METOPROLOL. [Concomitant]
     Active Substance: METOPROLOL
  9. ^GREENS^ PILLS [Concomitant]

REACTIONS (6)
  - Hypersensitivity [Recovered/Resolved]
  - Ageusia [Recovered/Resolved]
  - Fatigue [Recovered/Resolved]
  - Mouth swelling [Recovered/Resolved]
  - Paraesthesia oral [Recovered/Resolved]
  - Hypogeusia [Recovered/Resolved]

NARRATIVE: CASE EVENT DATE: 20170501
